FAERS Safety Report 5970287-2 (Version None)
Quarter: 2008Q4

REPORT INFORMATION
  Report Type: 
  Country: None (occurrence: None)
  Receive Date: 20081126
  Receipt Date: 20081121
  Transmission Date: 20090506
  Serious: Yes (Other)
  Sender: FDA-Public Use
  Company Number: CH-PFIZER INC-2008098575

PATIENT
  Age: 70 Year
  Sex: Male

DRUGS (11)
  1. ZOLOFT [Suspect]
     Indication: DEPRESSION
     Route: 048
     Dates: start: 20081010
  2. SINTROM [Interacting]
     Indication: ATRIAL FIBRILLATION
     Dosage: TEXT:AS NECESSARY
     Route: 048
     Dates: start: 20081015
  3. SINTROM [Interacting]
     Indication: ATRIAL FLUTTER
  4. CORDARONE [Interacting]
     Indication: ATRIAL FIBRILLATION
     Route: 048
     Dates: start: 20081004
  5. CORDARONE [Interacting]
     Indication: ATRIAL FLUTTER
  6. AMLODIPINE [Concomitant]
     Route: 048
     Dates: start: 20081004
  7. METFORMIN HCL [Concomitant]
     Route: 048
  8. METOPROLOL TARTRATE [Concomitant]
     Route: 048
     Dates: start: 20081016
  9. MICARDIS [Concomitant]
     Route: 048
  10. ESIDRIX [Concomitant]
     Route: 048
     Dates: start: 20081017
  11. TORSEMIDE [Concomitant]
     Route: 048

REACTIONS (2)
  - DRUG INTERACTION [None]
  - INTERNATIONAL NORMALISED RATIO INCREASED [None]
